FAERS Safety Report 5174360-0 (Version None)
Quarter: 2006Q4

REPORT INFORMATION
  Report Type: 
  Country: None (occurrence: None)
  Receive Date: 20061214
  Receipt Date: 20061206
  Transmission Date: 20070319
  Serious: Yes (Death)
  Sender: FDA-Public Use
  Company Number: HU-ELI_LILLY_AND_COMPANY-HU200612000796

PATIENT
  Age: 61 Year
  Sex: Male

DRUGS (5)
  1. ZYPREXA [Suspect]
     Indication: BIPOLAR DISORDER
     Dosage: UNK, EACH EVENING
     Route: 048
     Dates: start: 20061108
  2. LEPONEX [Concomitant]
     Indication: BIPOLAR DISORDER
     Dosage: 25 MG, UNK
     Route: 048
  3. SEDUXEN [Concomitant]
     Indication: ANXIETY
     Dosage: 5 MG, UNK
     Route: 048
  4. LITHIUM CARBONATE [Concomitant]
     Indication: BIPOLAR DISORDER
     Dosage: 500 MG, UNK
     Route: 048
  5. TEGRETOL [Concomitant]
     Indication: BIPOLAR DISORDER
     Dosage: 200 MG, UNK
     Route: 048

REACTIONS (2)
  - ACUTE MYOCARDIAL INFARCTION [None]
  - MYOCARDIAL INFARCTION [None]
